FAERS Safety Report 7945212-5 (Version None)
Quarter: 2011Q4

REPORT INFORMATION
  Report Type: 
  Country: None (occurrence: None)
  Receive Date: 20111129
  Receipt Date: 20110329
  Transmission Date: 20120403
  Serious: No
  Sender: FDA-Public Use
  Company Number: US-GLAXOSMITHKLINE-A0920453A

PATIENT
  Age: 70 Year
  Sex: Male

DRUGS (7)
  1. ATENOLOL [Concomitant]
  2. LOVASTATIN [Concomitant]
  3. CAPTOPRIL [Concomitant]
  4. FLOVENT [Suspect]
     Indication: DYSPNOEA
     Dosage: 1PUFF PER DAY
     Route: 055
     Dates: start: 20110217
  5. GEMFIBROZIL [Concomitant]
  6. GLIPIZIDE [Concomitant]
  7. TERAZOSIN HCL [Concomitant]

REACTIONS (4)
  - PRODUCT QUALITY ISSUE [None]
  - DYSPNOEA [None]
  - DRUG INEFFECTIVE [None]
  - NO THERAPEUTIC RESPONSE [None]
